FAERS Safety Report 15588549 (Version 4)
Quarter: 2019Q1

REPORT INFORMATION
  Report Type: Spontaneous
  Country: DE (occurrence: DE)
  Receive Date: 20181105
  Receipt Date: 20190204
  Transmission Date: 20190417
  Serious: Yes (Other)
  Sender: FDA-Public Use
  Company Number: DE-UCBSA-2018048693

PATIENT
  Sex: Female
  Weight: 60 kg

DRUGS (6)
  1. LEVETIRACETAM UCB [Suspect]
     Active Substance: LEVETIRACETAM
     Indication: LENNOX-GASTAUT SYNDROME
     Dosage: 15 ML, 2X/DAY (BID)
     Route: 048
     Dates: start: 20181012, end: 2018
  2. LEVETIRACETAM UCB [Suspect]
     Active Substance: LEVETIRACETAM
     Indication: OFF LABEL USE
  3. OSPOLOT [Concomitant]
     Active Substance: SULTHIAME
     Indication: EPILEPSY
     Dosage: 200 MG, 2X/DAY (BID)
  4. LAMOTRIGINE. [Concomitant]
     Active Substance: LAMOTRIGINE
     Indication: PRODUCT USED FOR UNKNOWN INDICATION
     Dosage: 250 MG, 2X/DAY (BID)
  5. KEPPRA [Suspect]
     Active Substance: LEVETIRACETAM
     Indication: LENNOX-GASTAUT SYNDROME
     Dosage: UNK
     Dates: end: 201810
  6. KEPPRA [Suspect]
     Active Substance: LEVETIRACETAM
     Indication: OFF LABEL USE

REACTIONS (6)
  - Generalised tonic-clonic seizure [Recovered/Resolved]
  - Product substitution issue [Unknown]
  - Off label use [Unknown]
  - Petit mal epilepsy [Not Recovered/Not Resolved]
  - Wrong technique in product usage process [Unknown]
  - Seizure [Recovered/Resolved]

NARRATIVE: CASE EVENT DATE: 2004
